FAERS Safety Report 8047308-9 (Version None)
Quarter: 2012Q1

REPORT INFORMATION
  Report Type: 
  Country: None (occurrence: None)
  Receive Date: 20120116
  Receipt Date: 20120111
  Transmission Date: 20120608
  Serious: Yes (Death)
  Sender: FDA-Public Use
  Company Number: TN-SANOFI-AVENTIS-2012SA002326

PATIENT
  Age: 61 Year
  Sex: Male

DRUGS (6)
  1. OMEPRAZOLE [Concomitant]
     Route: 048
     Dates: end: 20110707
  2. PLAVIX [Suspect]
     Route: 048
     Dates: start: 20110520, end: 20110707
  3. CORVASAL [Concomitant]
     Route: 048
     Dates: end: 20110707
  4. ATORVASTATIN [Concomitant]
     Route: 048
     Dates: end: 20110707
  5. PLAVIX [Suspect]
     Route: 048
     Dates: start: 20110520, end: 20110707
  6. ASPEGIC 325 [Concomitant]
     Route: 048
     Dates: end: 20110707

REACTIONS (2)
  - LUNG CANCER METASTATIC [None]
  - CEREBROVASCULAR ACCIDENT [None]
